FAERS Safety Report 9201562 (Version 2)
Quarter: 2013Q4

REPORT INFORMATION
  Report Type: Spontaneous
  Country: US (occurrence: US)
  Receive Date: 20130401
  Receipt Date: 20131212
  Transmission Date: 20140711
  Serious: Yes (Other)
  Sender: FDA-Public Use
  Company Number: US-BAYER-2013-038293

PATIENT
  Age: 17 Year
  Sex: Female

DRUGS (1)
  1. YASMIN [Suspect]
     Dosage: UNK

REACTIONS (7)
  - Gallbladder injury [None]
  - Cholecystitis chronic [None]
  - Biliary dyskinesia [None]
  - Injury [None]
  - General physical health deterioration [None]
  - Emotional distress [None]
  - Pain [None]
